FAERS Safety Report 21684328 (Version 1)
Quarter: 2022Q4

REPORT INFORMATION
  Report Type: Spontaneous
  Country: US (occurrence: None)
  Receive Date: 20221203
  Receipt Date: 20221203
  Transmission Date: 20230113
  Serious: No
  Sender: FDA-Public Use
  Company Number: None

PATIENT
  Age: 84 Year
  Sex: Female
  Weight: 81.19 kg

DRUGS (8)
  1. RABEPRAZOLE [Suspect]
     Active Substance: RABEPRAZOLE
     Indication: Gastrooesophageal reflux disease
     Dosage: FREQUENCY : DAILY;?
     Route: 048
     Dates: start: 2011, end: 20131112
  2. ESOMEPRAZOLE [Suspect]
     Active Substance: ESOMEPRAZOLE
     Indication: Gastrooesophageal reflux disease
  3. PREVACID [Suspect]
     Active Substance: LANSOPRAZOLE
  4. PROTONIX [Suspect]
     Active Substance: PANTOPRAZOLE SODIUM
  5. OMEPRAZOLE [Suspect]
     Active Substance: OMEPRAZOLE
  6. OMEPRAZOLE [Suspect]
     Active Substance: OMEPRAZOLE
  7. PREVACID [Suspect]
     Active Substance: LANSOPRAZOLE
  8. PANTOPRAZOLE [Suspect]
     Active Substance: PANTOPRAZOLE

REACTIONS (4)
  - Drug ineffective [None]
  - Haematochezia [None]
  - Diarrhoea [None]
  - Abdominal pain [None]

NARRATIVE: CASE EVENT DATE: 20160203
